FAERS Safety Report 6061813-6 (Version None)
Quarter: 2009Q1

REPORT INFORMATION
  Report Type: 
  Country: None (occurrence: None)
  Receive Date: 20090202
  Receipt Date: 20090123
  Transmission Date: 20090719
  Serious: Yes (Other)
  Sender: FDA-Public Use
  Company Number: AU-ELI_LILLY_AND_COMPANY-AU200812003177

PATIENT
  Sex: Male

DRUGS (5)
  1. BYETTA [Suspect]
     Indication: DIABETES MELLITUS
     Dosage: 10 UG, UNKNOWN
     Route: 065
     Dates: start: 20080214
  2. NEXIUM [Concomitant]
     Dosage: 20 MG, UNKNOWN
     Route: 065
     Dates: start: 20090112
  3. LYRICA [Concomitant]
     Dosage: 75 MG, UNKNOWN
     Route: 065
     Dates: start: 20080709
  4. CRESTOR [Concomitant]
     Dosage: 1 G, UNKNOWN
     Route: 065
     Dates: start: 20080801
  5. COVERSYL [Concomitant]
     Dosage: 5 MG, UNKNOWN
     Route: 065
     Dates: start: 20080801

REACTIONS (1)
  - DIABETES MELLITUS INADEQUATE CONTROL [None]
